FAERS Safety Report 17874504 (Version 2)
Quarter: 2020Q2

REPORT INFORMATION
  Report Type: Spontaneous
  Country: DK (occurrence: DK)
  Receive Date: 20200609
  Receipt Date: 20200612
  Transmission Date: 20200714
  Serious: Yes (Other)
  Sender: FDA-Public Use
  Company Number: DK-MYLANLABS-2020M1054621

PATIENT
  Age: 68 Year
  Sex: Female
  Weight: 88 kg

DRUGS (13)
  1. ROSUVASTATIN. [Suspect]
     Active Substance: ROSUVASTATIN
     Indication: HYPERCHOLESTEROLAEMIA
     Dosage: STYRKE: 5 MG.
     Route: 048
     Dates: start: 20190403, end: 201908
  2. IMOZOP [Concomitant]
     Active Substance: ZOPICLONE
     Indication: INSOMNIA
     Dosage: FILM-COATED TABLET
     Route: 048
     Dates: start: 20160823
  3. ATORVASTATIN [Suspect]
     Active Substance: ATORVASTATIN
     Indication: HYPERCHOLESTEROLAEMIA
     Dosage: STRENGTH: 10 MG. DOSAGE: VARYING.
     Route: 048
     Dates: start: 20120619, end: 201909
  4. COLESTYRAMIN [Suspect]
     Active Substance: CHOLESTYRAMINE
     Indication: HYPERCHOLESTEROLAEMIA
     Dosage: STYRKE: 4 MG.
     Route: 048
     Dates: start: 20191111
  5. SPIRON                             /00006201/ [Concomitant]
     Active Substance: SPIRONOLACTONE
     Indication: DIURETIC THERAPY
     Dosage: STYRKE: 25 MG
     Route: 048
     Dates: start: 20130719
  6. FURIX [Concomitant]
     Indication: DIURETIC THERAPY
     Dosage: STYRKE: 40 MG
     Route: 048
     Dates: start: 20150713
  7. ROSUVASTATIN. [Suspect]
     Active Substance: ROSUVASTATIN
     Dosage: STYRKE: 5 MG ?GES LANGSOMT FRA 5 MG 2
     Route: 048
     Dates: start: 20190403, end: 20190822
  8. COZAAR [Concomitant]
     Active Substance: LOSARTAN POTASSIUM
     Indication: HYPERTENSION
     Dosage: STYRKE: 100 MG
     Route: 048
  9. MAREVAN [Concomitant]
     Active Substance: WARFARIN SODIUM
     Indication: ANTICOAGULANT THERAPY
     Dosage: STRENGTH: 2.5 MG. DOSAGE: UNKNOWN.
     Route: 048
     Dates: start: 20140127
  10. KALEORID [Concomitant]
     Active Substance: POTASSIUM CHLORIDE
     Indication: MINERAL SUPPLEMENTATION
     Dosage: STYRKE: 750 MG
     Route: 048
     Dates: start: 20150903
  11. VAGIFEM [Concomitant]
     Active Substance: ESTRADIOL
     Indication: MUCOSAL DRYNESS
     Dosage: STYRKE: 10 ?G. DOSIS:
     Route: 067
     Dates: start: 20141222
  12. PANTOPRAZOL KRKA [Concomitant]
     Active Substance: PANTOPRAZOLE
     Indication: GASTRIC PH DECREASED
     Dosage: STYRKE: 40 MG
     Route: 048
  13. EZETIMIBE. [Suspect]
     Active Substance: EZETIMIBE
     Indication: HYPERCHOLESTEROLAEMIA
     Dosage: STYRKE: 10 MG
     Route: 048
     Dates: start: 20190924

REACTIONS (1)
  - Hallucination, auditory [Recovering/Resolving]

NARRATIVE: CASE EVENT DATE: 20190401
